FAERS Safety Report 8539745 (Version 2)
Quarter: 2012Q4

REPORT INFORMATION
  Report Type: Spontaneous
  Country: GB (occurrence: GB)
  Receive Date: 20120502
  Receipt Date: 20121218
  Transmission Date: 20130627
  Serious: Yes (Disabling)
  Sender: FDA-Public Use
  Company Number: GB-ACCORD-013302

PATIENT
  Sex: Male
  Weight: 75 kg

DRUGS (2)
  1. SIMVASTATIN (SIMVASTATIN) [Suspect]
     Dosage: times Per-1.00Days
     Route: 048
     Dates: start: 2010, end: 20111019
  2. METFORMIN (METFORMIN) [Concomitant]
     Route: 048
     Dates: start: 2010

REACTIONS (1)
  - Lichenoid keratosis [Recovered/Resolved]
